FAERS Safety Report 9553423 (Version 1)
Quarter: 2013Q3

REPORT INFORMATION
  Report Type: Spontaneous
  Country: FR (occurrence: FR)
  Receive Date: 20130925
  Receipt Date: 20130925
  Transmission Date: 20140515
  Serious: Yes (Hospitalization)
  Sender: FDA-Public Use
  Company Number: FR-PFIZER INC-2013274013

PATIENT
  Age: 78 Year
  Sex: Male

DRUGS (4)
  1. CORDARONE [Suspect]
     Indication: ARRHYTHMIA
     Dosage: 200 MG, DAILY
     Route: 048
     Dates: start: 201112
  2. PRADAXA [Interacting]
     Indication: ARRHYTHMIA
     Dosage: 110 MG, 2X/DAY
     Route: 048
     Dates: start: 20111118, end: 20130608
  3. EBIXA [Concomitant]
     Dosage: UNK
  4. DAFALGAN [Concomitant]
     Dosage: UNK

REACTIONS (2)
  - Drug interaction [Unknown]
  - Cerebral haematoma [Recovered/Resolved]
